FAERS Safety Report 13682622 (Version 1)
Quarter: 2017Q2

REPORT INFORMATION
  Report Type: Spontaneous
  Country: US (occurrence: US)
  Receive Date: 20170623
  Receipt Date: 20170623
  Transmission Date: 20170830
  Serious: No
  Sender: FDA-Public Use
  Company Number: US-IPSEN BIOPHARMACEUTICALS, INC.-2016-06221

PATIENT
  Age: 57 Year
  Sex: Female
  Weight: 75.4 kg

DRUGS (4)
  1. DYSPORT [Suspect]
     Active Substance: ABOBOTULINUMTOXINA
     Indication: SKIN WRINKLING
     Dosage: 10 U
     Route: 030
     Dates: start: 20160712, end: 20160712
  2. DYSPORT [Suspect]
     Active Substance: ABOBOTULINUMTOXINA
     Indication: PRODUCT USE IN UNAPPROVED INDICATION
  3. TESTOSTERONE/ESTROGEN [Concomitant]
     Active Substance: ESTROGENS\TESTOSTERONE
     Dates: start: 20130419
  4. PROGESTERON [Concomitant]
     Active Substance: PROGESTERONE
     Dates: start: 20130419

REACTIONS (5)
  - Dysphagia [Recovering/Resolving]
  - Swollen tongue [Recovering/Resolving]
  - Speech disorder [Recovering/Resolving]
  - Hypoaesthesia oral [Recovering/Resolving]
  - Drooling [Recovering/Resolving]

NARRATIVE: CASE EVENT DATE: 201607
